FAERS Safety Report 19710555 (Version 3)
Quarter: 2022Q2

REPORT INFORMATION
  Report Type: Report from Study
  Country: FR (occurrence: FR)
  Receive Date: 20210816
  Receipt Date: 20220609
  Transmission Date: 20220721
  Serious: Yes (Death)
  Sender: FDA-Public Use
  Company Number: FR-PFIZER INC-202101037076

PATIENT

DRUGS (5)
  1. DOCETAXEL [Suspect]
     Active Substance: DOCETAXEL
     Indication: Non-small cell lung cancer
     Dosage: 75 MG/M2, EVERY 3 WEEKS
     Route: 042
  2. TRASTUZUMAB [Suspect]
     Active Substance: TRASTUZUMAB
     Indication: Non-small cell lung cancer
     Dosage: LOADING DOSE OF 8 MG/KG, EVERY 3 WEEKS
     Route: 042
  3. TRASTUZUMAB [Suspect]
     Active Substance: TRASTUZUMAB
     Dosage: 6 MG/KG, EVERY 3 WEEKS
  4. PERTUZUMAB [Suspect]
     Active Substance: PERTUZUMAB
     Indication: Non-small cell lung cancer
     Dosage: LOADING DOSE OF 840 MG, EVERY 3 WEEKS
     Route: 042
  5. PERTUZUMAB [Suspect]
     Active Substance: PERTUZUMAB
     Dosage: 420 MG, EVERY 3 WEEKS
     Route: 042

REACTIONS (1)
  - Sudden death [Fatal]
